FAERS Safety Report 4387451-9 (Version None)
Quarter: 2004Q2

REPORT INFORMATION
  Report Type: 
  Country: None (occurrence: None)
  Receive Date: 20040630
  Receipt Date: 20040129
  Transmission Date: 20050107
  Serious: No
  Sender: FDA-Public Use
  Company Number: US-BRISTOL-MYERS SQUIBB COMPANY-12491288

PATIENT
  Sex: Male

DRUGS (5)
  1. SUSTIVA [Suspect]
     Dates: start: 20031204, end: 20031204
  2. VIDEX [Suspect]
     Dosage: STOPPED 04-DEC-2003 RESTARTED ON 08-DEC-2003 AND THEN DISCONTINUED.
     Dates: start: 20031204, end: 20031201
  3. REYATAZ [Suspect]
     Dosage: DISCONTINUED DEC-2003 RESTARTED 23-DEC-2003
     Dates: start: 20031208
  4. EMTRIVA [Suspect]
     Dosage: STOPPED ON 04-DEC-2003 AND RESTARTED ON 08-DEC-2003 AND THEN DISCONTINUED
     Dates: start: 20031204, end: 20031201
  5. NORVIR [Suspect]
     Dosage: DISCONTINUED IN DEC-2003 AND RESTARTED 23-DEC-2003
     Dates: start: 20031208

REACTIONS (3)
  - PRURITUS [None]
  - RASH [None]
  - URTICARIA [None]
